FAERS Safety Report 18441073 (Version 1)
Quarter: 2020Q4

REPORT INFORMATION
  Report Type: Spontaneous
  Country: RU (occurrence: RU)
  Receive Date: 20201029
  Receipt Date: 20201029
  Transmission Date: 20210114
  Serious: Yes (Other)
  Sender: FDA-Public Use
  Company Number: RU-ABBVIE-20K-251-3623521-00

PATIENT

DRUGS (1)
  1. VENCLEXTA [Suspect]
     Active Substance: VENETOCLAX
     Indication: PRODUCT USED FOR UNKNOWN INDICATION
     Route: 048

REACTIONS (8)
  - Neutropenia [Unknown]
  - Toxic skin eruption [Unknown]
  - Infection [Unknown]
  - Pemphigoid [Unknown]
  - Anaemia [Unknown]
  - Rash [Unknown]
  - Thrombocytopenia [Unknown]
  - Pneumonia [Unknown]
